FAERS Safety Report 6701008-3 (Version None)
Quarter: 2010Q2

REPORT INFORMATION
  Report Type: 
  Country: None (occurrence: None)
  Receive Date: 20100428
  Receipt Date: 20100419
  Transmission Date: 20101027
  Serious: Yes (Hospitalization)
  Sender: FDA-Public Use
  Company Number: US-SANOFI-AVENTIS-2010SA006817

PATIENT
  Age: 58 Year
  Sex: Male
  Weight: 103.4 kg

DRUGS (25)
  1. LANTUS [Suspect]
     Dosage: DOSE:12 UNIT(S)
     Route: 058
     Dates: start: 20090801, end: 20091010
  2. LANTUS [Suspect]
     Dosage: 5 OR 6 VIALS (CONFLICTED INFORMATION)
     Route: 058
     Dates: start: 20091010, end: 20091010
  3. SOLOSTAR [Suspect]
     Dates: start: 20090801, end: 20091010
  4. GLYBURIDE [Suspect]
     Dosage: 30 OR 40 PILLS
     Route: 065
     Dates: start: 20091001, end: 20091001
  5. GLYBURIDE [Suspect]
     Route: 065
  6. TYLENOL W/ CODEINE NO. 3 [Suspect]
     Dosage: 30-40
     Route: 065
     Dates: start: 20091001, end: 20091001
  7. MORPHINE [Suspect]
     Route: 065
     Dates: start: 20091001, end: 20091001
  8. LISINOPRIL [Concomitant]
     Route: 048
  9. PERCOCET [Concomitant]
  10. SIMVASTATIN [Concomitant]
  11. FLEXERIL [Concomitant]
     Route: 048
  12. ZYRTEC [Concomitant]
     Route: 048
  13. ASPIRIN [Concomitant]
     Route: 048
  14. VIAGRA [Concomitant]
     Route: 048
  15. NASACORT AQ [Concomitant]
     Route: 045
  16. ASTELIN [Concomitant]
     Route: 045
  17. VOLTAREN [Concomitant]
     Route: 048
  18. ANDROGEL [Concomitant]
     Dosage: DOSE:8 UNIT(S)
     Route: 061
  19. LOTRISONE [Concomitant]
     Dosage: 1-0.5% 1 DAB
     Route: 061
  20. ROBITUSSIN AC ^ROBINS^ [Concomitant]
     Dosage: 100-10MG/5; 1-2 TSP EVERY 4 HOURS AS NEEDED
     Route: 048
  21. PREDNISONE [Concomitant]
     Route: 048
  22. MUCINEX [Concomitant]
     Dosage: 600MG-60MG
     Route: 048
  23. KENALOG-40 [Concomitant]
     Dosage: DOSE:40 MILLIGRAM(S)/MILLILITRE
  24. AZITHROMYCIN [Concomitant]
     Route: 048
  25. TRAMADOL HYDROCHLORIDE [Concomitant]
     Route: 048

REACTIONS (10)
  - CONTUSION [None]
  - FLANK PAIN [None]
  - HEADACHE [None]
  - HYPERSOMNIA [None]
  - INTENTIONAL OVERDOSE [None]
  - LOSS OF CONSCIOUSNESS [None]
  - MALAISE [None]
  - MUSCULOSKELETAL PAIN [None]
  - PARAESTHESIA [None]
  - SUICIDE ATTEMPT [None]
